FAERS Safety Report 20154114 (Version 9)
Quarter: 2022Q1

REPORT INFORMATION
  Report Type: Spontaneous
  Country: GR (occurrence: GR)
  Receive Date: 20211207
  Receipt Date: 20220331
  Transmission Date: 20220423
  Serious: Yes (Life-Threatening, Hospitalization, Other)
  Sender: FDA-Public Use
  Company Number: GR-CELLTRION INC.-2021GR016333

PATIENT

DRUGS (4)
  1. RITUXIMAB [Suspect]
     Active Substance: RITUXIMAB
     Indication: Non-Hodgkin^s lymphoma
     Dosage: UNK
     Route: 042
  2. HYDROCORTISONE [Concomitant]
     Active Substance: HYDROCORTISONE
     Dosage: 500 MILLIGRAM
  3. APIXABAN [Concomitant]
     Active Substance: APIXABAN
     Indication: Atrial fibrillation
     Dosage: 2.5 MG EVERY 0.5 DAYS
  4. APIXABAN [Concomitant]
     Active Substance: APIXABAN
     Dosage: 2.5 MG TWICE PER DAY

REACTIONS (7)
  - Hypertensive crisis [Unknown]
  - Kounis syndrome [Recovering/Resolving]
  - Acute pulmonary oedema [Recovering/Resolving]
  - Anaphylactic reaction [Unknown]
  - Atrial fibrillation [Recovering/Resolving]
  - Myocardial infarction [Unknown]
  - Pulmonary oedema [Unknown]
